FAERS Safety Report 8906064 (Version 3)
Quarter: 2013Q1

REPORT INFORMATION
  Report Type: Report from Study
  Country: US (occurrence: US)
  Receive Date: 20121109
  Receipt Date: 20130221
  Transmission Date: 20140127
  Serious: Yes (Other)
  Sender: FDA-Public Use
  Company Number: US-ABBOTT-12P-163-1004389-00

PATIENT
  Age: 36 None
  Sex: Male
  Weight: 97.16 kg

DRUGS (2)
  1. HUMIRA [Suspect]
     Indication: PSORIASIS
     Dates: start: 201009
  2. ADVIL [Concomitant]
     Indication: HEADACHE

REACTIONS (5)
  - Rotator cuff syndrome [Recovered/Resolved]
  - Rash papular [Recovered/Resolved]
  - Rash pustular [Recovered/Resolved]
  - Rash papular [Not Recovered/Not Resolved]
  - Rash pustular [Recovered/Resolved]
